FAERS Safety Report 8307668-8 (Version None)
Quarter: 2012Q2

REPORT INFORMATION
  Report Type: 
  Country: None (occurrence: None)
  Receive Date: 20120424
  Receipt Date: 20120424
  Transmission Date: 20120825
  Serious: Yes (Life-Threatening, Hospitalization, Other)
  Sender: FDA-Public Use
  Company Number: None

PATIENT
  Age: 53 Year
  Sex: Female
  Weight: 54.431 kg

DRUGS (2)
  1. DIAZEPAM [Suspect]
     Indication: ANXIETY
     Dosage: 1 TAB
     Route: 048
     Dates: start: 20100527, end: 20120423
  2. TEMAZEPAM,OXAZEPAM [Concomitant]
     Indication: MUSCLE TIGHTNESS
     Dosage: UNKNOWN WHAT OR HOW WAS GIVEN
     Route: 065
     Dates: start: 20110210, end: 20110705

REACTIONS (6)
  - MUSCULAR WEAKNESS [None]
  - PALPITATIONS [None]
  - DYSARTHRIA [None]
  - OVERDOSE [None]
  - BODY FAT DISORDER [None]
  - CARDIOMYOPATHY [None]
